FAERS Safety Report 25078390 (Version 4)
Quarter: 2025Q2

REPORT INFORMATION
  Report Type: Report from Study
  Country: CA (occurrence: CA)
  Receive Date: 20250314
  Receipt Date: 20250605
  Transmission Date: 20250717
  Serious: Yes (Other)
  Sender: TAKEDA
  Company Number: CA-TAKEDA-2025TUS022191

PATIENT
  Age: 69 Year
  Sex: Female

DRUGS (5)
  1. VEDOLIZUMAB [Suspect]
     Active Substance: VEDOLIZUMAB
     Indication: Crohn^s disease
  2. VEDOLIZUMAB [Suspect]
     Active Substance: VEDOLIZUMAB
  3. VEDOLIZUMAB [Suspect]
     Active Substance: VEDOLIZUMAB
  4. METFORMIN [Concomitant]
     Active Substance: METFORMIN HYDROCHLORIDE
  5. PAROXETINE [Concomitant]
     Active Substance: PAROXETINE

REACTIONS (5)
  - Crohn^s disease [Recovered/Resolved]
  - Secretion discharge [Recovering/Resolving]
  - Brain fog [Recovering/Resolving]
  - Drug level decreased [Unknown]
  - Drug specific antibody absent [Unknown]

NARRATIVE: CASE EVENT DATE: 20250227
